FAERS Safety Report 7409847-0 (Version None)
Quarter: 2011Q2

REPORT INFORMATION
  Report Type: 
  Country: None (occurrence: None)
  Receive Date: 20110412
  Receipt Date: 20110401
  Transmission Date: 20111010
  Serious: Yes (Other)
  Sender: FDA-Public Use
  Company Number: US-ELI_LILLY_AND_COMPANY-US201102005663

PATIENT
  Sex: Male

DRUGS (5)
  1. CORTICOSTEROID NOS [Concomitant]
     Dosage: UNK
  2. VITAMIN B-12 [Concomitant]
     Dosage: UNK
  3. FOLIC ACID [Concomitant]
     Dosage: UNK
  4. CARBOPLATIN [Concomitant]
     Indication: NON-SMALL CELL LUNG CANCER
  5. ALIMTA [Suspect]
     Indication: NON-SMALL CELL LUNG CANCER
     Dosage: 1095 MG, EVERY 3 WEEKS
     Route: 042
     Dates: start: 20110107

REACTIONS (1)
  - NEPHROPATHY TOXIC [None]
